FAERS Safety Report 5519555-9 (Version None)
Quarter: 2007Q4

REPORT INFORMATION
  Report Type: 
  Country: None (occurrence: None)
  Receive Date: 20071116
  Receipt Date: 20071115
  Transmission Date: 20080405
  Serious: Yes (Congenital Anomaly, Other)
  Sender: FDA-Public Use
  Company Number: B0495447A

PATIENT

DRUGS (1)
  1. LAMOTRIGINE [Suspect]
     Indication: EPILEPSY
     Dosage: 40MG PER DAY
     Dates: start: 20060101

REACTIONS (2)
  - ANENCEPHALY [None]
  - DRUG EXPOSURE DURING PREGNANCY [None]
